FAERS Safety Report 24988298 (Version 3)
Quarter: 2025Q3

REPORT INFORMATION
  Report Type: Spontaneous
  Country: US (occurrence: US)
  Receive Date: 20250220
  Receipt Date: 20250810
  Transmission Date: 20251021
  Serious: No
  Sender: ALEXION PHARMACEUTICALS
  Company Number: US-AstraZeneca-CH-00806721AP

PATIENT
  Sex: Male

DRUGS (1)
  1. BREZTRI [Suspect]
     Active Substance: BUDESONIDE\FORMOTEROL\GLYCOPYRROLATE
     Route: 065

REACTIONS (6)
  - Incorrect dose administered [Unknown]
  - Oral fungal infection [Unknown]
  - Chills [Unknown]
  - Oxygen saturation [Unknown]
  - Off label use [Unknown]
  - Wrong technique in device usage process [Unknown]
